FAERS Safety Report 7597327-1 (Version None)
Quarter: 2011Q3

REPORT INFORMATION
  Report Type: 
  Country: None (occurrence: None)
  Receive Date: 20110708
  Receipt Date: 20110704
  Transmission Date: 20111222
  Serious: Yes (Other)
  Sender: FDA-Public Use
  Company Number: CA-TEVA-289154USA

PATIENT
  Age: 45 Year
  Sex: Female

DRUGS (3)
  1. FENTANYL [Suspect]
     Indication: BACK PAIN
     Dosage: 175 UG/H
     Route: 062
  2. METHYLPREDNISOLONE [Suspect]
     Indication: BACK PAIN
  3. OXYCODONE HCL AND ACETAMINOPHEN [Suspect]
     Indication: BACK PAIN
     Dosage: 5/325 MG

REACTIONS (1)
  - ADRENAL INSUFFICIENCY [None]
